FAERS Safety Report 18407726 (Version 1)
Quarter: 2020Q4

REPORT INFORMATION
  Report Type: Spontaneous
  Country: PT (occurrence: PT)
  Receive Date: 20201020
  Receipt Date: 20201020
  Transmission Date: 20210114
  Serious: Yes (Death, Life-Threatening, Hospitalization, Other)
  Sender: FDA-Public Use
  Company Number: PT-MYLANLABS-2020M1088065

PATIENT
  Age: 5 Year
  Sex: Female

DRUGS (3)
  1. HAEMOPHILUS INFLUENZAE TYPE B [Suspect]
     Active Substance: HAEMOPHILUS INFLUENZAE TYPE B
     Indication: PROPHYLAXIS
     Dosage: UNK
  2. DEXAMETHASONE. [Suspect]
     Active Substance: DEXAMETHASONE
     Indication: PRODUCT USED FOR UNKNOWN INDICATION
     Dosage: UNK
  3. EPINEPHRINE. [Suspect]
     Active Substance: EPINEPHRINE
     Indication: PRODUCT USED FOR UNKNOWN INDICATION
     Dosage: UNK

REACTIONS (17)
  - Cardio-respiratory arrest [Unknown]
  - Craniocerebral injury [Unknown]
  - General physical health deterioration [Unknown]
  - Myoclonus [Unknown]
  - Heart rate decreased [Unknown]
  - Respiratory distress [Unknown]
  - Oropharyngeal pain [Unknown]
  - Brain oedema [Unknown]
  - Cerebral circulatory failure [Fatal]
  - Stridor [Unknown]
  - Dyspnoea [Unknown]
  - Status epilepticus [Unknown]
  - Cerebral disorder [Unknown]
  - Leukocytosis [Unknown]
  - Neutrophilia [Unknown]
  - Epiglottitis haemophilus [Unknown]
  - Vaccination failure [Unknown]
